FAERS Safety Report 17574523 (Version 9)
Quarter: 2020Q4

REPORT INFORMATION
  Report Type: Spontaneous
  Country: BR (occurrence: BR)
  Receive Date: 20200324
  Receipt Date: 20201028
  Transmission Date: 20210113
  Serious: Yes (Hospitalization, Disabling, Other)
  Sender: FDA-Public Use
  Company Number: BR-CELLTRION INC.-2018BR023499

PATIENT

DRUGS (10)
  1. REMSIMA [Suspect]
     Active Substance: INFLIXIMAB
     Dosage: UNK
     Route: 065
     Dates: start: 20190904, end: 202002
  2. CALCITRIOL. [Concomitant]
     Active Substance: CALCITRIOL
     Dosage: UNK
  3. AMLODIPINE [Concomitant]
     Active Substance: AMLODIPINE BESYLATE
     Dosage: 0.5 MG
  4. INDAPAMIDE. [Concomitant]
     Active Substance: INDAPAMIDE
     Dosage: 1.5 MG
  5. REMSIMA [Suspect]
     Active Substance: INFLIXIMAB
     Dosage: STOP DATE: JUL 2020
     Route: 065
  6. IMUNEM [Concomitant]
     Dosage: UNK
  7. REMSIMA [Suspect]
     Active Substance: INFLIXIMAB
     Indication: CROHN^S DISEASE
     Dosage: AMPOULE BOTTLE 100 MG
     Route: 065
     Dates: start: 20180220
  8. REMSIMA [Suspect]
     Active Substance: INFLIXIMAB
     Dosage: STOP DATE: 20 MAR 2020
     Route: 065
  9. INDAPEN [INDAPAMIDE] [Concomitant]
     Dosage: 1.5 MG
  10. AZATHIOPRINE. [Concomitant]
     Active Substance: AZATHIOPRINE
     Dosage: UNK

REACTIONS (20)
  - Fall [Unknown]
  - Hypertension [Unknown]
  - Pneumonia [Recovered/Resolved]
  - Weight decreased [Unknown]
  - Pulmonary mass [Unknown]
  - Anxiety [Unknown]
  - Tremor [Unknown]
  - Diarrhoea [Unknown]
  - Sleep disorder [Unknown]
  - Sepsis [Unknown]
  - Asthenia [Unknown]
  - Hunger [Unknown]
  - Peripheral swelling [Unknown]
  - Wrist fracture [Unknown]
  - COVID-19 [Unknown]
  - Colitis [Recovering/Resolving]
  - Immune system disorder [Unknown]
  - Disability [Unknown]
  - Lung disorder [Unknown]
  - Therapy interrupted [Unknown]

NARRATIVE: CASE EVENT DATE: 20200211
